FAERS Safety Report 23369228 (Version 3)
Quarter: 2024Q1

REPORT INFORMATION
  Report Type: Report from Study
  Country: NL (occurrence: NL)
  Receive Date: 20240105
  Receipt Date: 20240129
  Transmission Date: 20240410
  Serious: Yes (Life-Threatening, Hospitalization)
  Sender: FDA-Public Use
  Company Number: NL-AstraZeneca-2024A002963

PATIENT
  Age: 2 Month
  Sex: Male
  Weight: 3.6 kg

DRUGS (1)
  1. SYNAGIS [Suspect]
     Active Substance: PALIVIZUMAB
     Indication: Premature baby
     Dosage: 15 MG/KG, MONTHLY
     Route: 030
     Dates: start: 20231205

REACTIONS (1)
  - Respiratory syncytial virus infection [Recovered/Resolved]
